FAERS Safety Report 5583904-6 (Version None)
Quarter: 2008Q1

REPORT INFORMATION
  Report Type: 
  Country: None (occurrence: None)
  Receive Date: 20080103
  Receipt Date: 20071003
  Transmission Date: 20080703
  Serious: No
  Sender: FDA-Public Use
  Company Number: 8027229

PATIENT
  Age: 28 Year
  Sex: Female

DRUGS (6)
  1. KEPPRA [Suspect]
     Indication: EPILEPSY
     Dosage: 1500 MG/D PO
     Route: 048
     Dates: end: 20070501
  2. KEPPRA [Suspect]
     Indication: EPILEPSY
     Dosage: 4000 MG/D PO
     Route: 048
     Dates: start: 20070815
  3. LAMICTAL [Concomitant]
  4. FOLIC ACID [Concomitant]
  5. PRENATAL VITAMINS [Concomitant]
  6. IRON [Concomitant]

REACTIONS (2)
  - ANAEMIA [None]
  - DRUG EXPOSURE DURING PREGNANCY [None]
